FAERS Safety Report 9223628 (Version 1)
Quarter: 2013Q2

REPORT INFORMATION
  Report Type: Spontaneous
  Country: JP (occurrence: JP)
  Receive Date: 20130410
  Receipt Date: 20130410
  Transmission Date: 20140414
  Serious: Yes (Other)
  Sender: FDA-Public Use
  Company Number: JP-GLAXOSMITHKLINE-B0881206A

PATIENT
  Sex: Female

DRUGS (5)
  1. SERETIDE (50MCG/250MCG) [Suspect]
     Indication: COUGH
     Route: 055
  2. ONON [Concomitant]
     Route: 048
  3. AZEPTIN [Concomitant]
     Route: 048
  4. UNIPHYL [Concomitant]
     Route: 048
  5. MEPTIN AIR [Concomitant]
     Route: 055

REACTIONS (3)
  - Dysphagia [Recovered/Resolved]
  - Oropharyngeal candidiasis [Recovered/Resolved]
  - Oesophageal candidiasis [Recovered/Resolved]
